FAERS Safety Report 21955709 (Version 1)
Quarter: 2023Q1

REPORT INFORMATION
  Report Type: Spontaneous
  Country: DE (occurrence: DE)
  Receive Date: 20230206
  Receipt Date: 20230206
  Transmission Date: 20230418
  Serious: Yes (Congenital Anomaly, Other)
  Sender: FDA-Public Use
  Company Number: DE-EMBRYOTOX-202103024

PATIENT
  Age: 1 Day
  Sex: Female
  Weight: 3.66 kg

DRUGS (3)
  1. ACYCLOVIR [Suspect]
     Active Substance: ACYCLOVIR
     Indication: Foetal exposure during pregnancy
     Dosage: 1200 MG, QD (1200 MG/D (3X400 MG)) (DATED 14 MAR 2021 TO 27 OCT 2021)
     Route: 064
  2. BOOSTRIX [Concomitant]
     Active Substance: TETANUS TOXOID, REDUCED DIPHTHERIA TOXOID AND ACELLULAR PERTUSSIS VACCINE, ADSORBED ANTIGENS
     Indication: Foetal exposure during pregnancy
     Dosage: UNK (FROM 09 JUL 2021 TO 09 JUL 2021)
     Route: 064
  3. FOLIC ACID [Concomitant]
     Active Substance: FOLIC ACID
     Indication: Foetal exposure during pregnancy
     Dosage: UNK
     Route: 064

REACTIONS (4)
  - Congenital cerebral cyst [Unknown]
  - Atrial septal defect [Unknown]
  - Herpes simplex test positive [Unknown]
  - Foetal exposure during pregnancy [Unknown]

NARRATIVE: CASE EVENT DATE: 20211001
